FAERS Safety Report 4865936-6 (Version None)
Quarter: 2005Q4

REPORT INFORMATION
  Report Type: 
  Country: None (occurrence: None)
  Receive Date: 20051226
  Receipt Date: 20051214
  Transmission Date: 20060501
  Serious: Yes (Other)
  Sender: FDA-Public Use
  Company Number: PHMT2005CA00816

PATIENT
  Sex: Female

DRUGS (7)
  1. DOXYCYCLINE [Concomitant]
     Indication: INFECTION
     Dosage: UNK, UNK
     Dates: start: 20050801
  2. HYDROCYCLIN [Concomitant]
     Dates: start: 20050901
  3. TOBRADEX [Concomitant]
     Dates: start: 20051001
  4. TOBRADEX [Concomitant]
     Dates: start: 20051101
  5. DOXYCYCLINE [Concomitant]
     Route: 048
     Dates: start: 20051101
  6. ARTIFICIAL TEARS [Concomitant]
     Dates: start: 20051215
  7. GENTEAL GEL (NVO) [Suspect]
     Dates: start: 20050601

REACTIONS (7)
  - EYE DISCHARGE [None]
  - EYE SWELLING [None]
  - EYELID DISORDER [None]
  - INFECTION [None]
  - OCULAR HYPERAEMIA [None]
  - PHOTOPHOBIA [None]
  - SURGERY [None]
